FAERS Safety Report 11790138 (Version 1)
Quarter: 2015Q4

REPORT INFORMATION
  Report Type: Report from Study
  Country: AT (occurrence: AT)
  Receive Date: 20151201
  Receipt Date: 20151201
  Transmission Date: 20160305
  Serious: Yes (Hospitalization)
  Sender: FDA-Public Use
  Company Number: AT-EISAI MEDICAL RESEARCH-EC-2015-010175

PATIENT
  Age: 38 Year
  Sex: Male
  Weight: 79 kg

DRUGS (11)
  1. FYCOMPA [Suspect]
     Active Substance: PERAMPANEL
     Route: 048
     Dates: start: 20141126, end: 20150118
  2. FYCOMPA [Suspect]
     Active Substance: PERAMPANEL
     Route: 048
     Dates: start: 20151113, end: 201511
  3. FYCOMPA [Suspect]
     Active Substance: PERAMPANEL
     Indication: EPILEPSY
     Route: 048
     Dates: start: 20141029, end: 20141111
  4. RISPERDON [Concomitant]
     Active Substance: RISPERIDONE
  5. FYCOMPA [Suspect]
     Active Substance: PERAMPANEL
     Route: 048
     Dates: start: 20141112, end: 20141125
  6. ZONEGRAN [Suspect]
     Active Substance: ZONISAMIDE
     Indication: EPILEPSY
     Route: 048
     Dates: start: 20150713, end: 201508
  7. FYCOMPA [Suspect]
     Active Substance: PERAMPANEL
     Route: 048
     Dates: start: 20150119, end: 20151112
  8. FYCOMPA [Suspect]
     Active Substance: PERAMPANEL
     Route: 048
     Dates: start: 20151120
  9. ZONEGRAN [Suspect]
     Active Substance: ZONISAMIDE
     Dosage: DOWNTITRATED (50 MG DOSAGE AT THE TIME OF DISCONTINUATION)
     Route: 048
     Dates: start: 201508, end: 20150814
  10. FRISIUM [Concomitant]
     Active Substance: CLOBAZAM
  11. VIMPAT [Concomitant]
     Active Substance: LACOSAMIDE

REACTIONS (1)
  - Acute psychosis [Recovering/Resolving]

NARRATIVE: CASE EVENT DATE: 20150806
